FAERS Safety Report 5148672-0 (Version None)
Quarter: 2006Q4

REPORT INFORMATION
  Report Type: 
  Country: None (occurrence: None)
  Receive Date: 20061106
  Receipt Date: 20061023
  Transmission Date: 20070319
  Serious: Yes (Hospitalization)
  Sender: FDA-Public Use
  Company Number: RB-4228-2006

PATIENT
  Age: 46 Year
  Sex: Male

DRUGS (5)
  1. SUBUTEX [Suspect]
     Indication: DRUG USE FOR UNKNOWN INDICATION
     Dosage: SUBLINGUAL TABLET, 1 MG
     Route: 048
  2. SUSTIVA [Suspect]
     Indication: DRUG USE FOR UNKNOWN INDICATION
     Dosage: 600 MG
     Route: 048
  3. COMBIVIR [Suspect]
     Dates: end: 20060619
  4. ZOLPIDEM TARTRATE [Suspect]
     Indication: DRUG USE FOR UNKNOWN INDICATION
     Dosage: 10 MG; TABLET
     Route: 048
  5. RIFAMPICIN [Suspect]
     Indication: DRUG USE FOR UNKNOWN INDICATION
     Dosage: 6 DF; TABLET
     Route: 048
     Dates: start: 20060403

REACTIONS (3)
  - ANAEMIA [None]
  - NEUTROPENIA [None]
  - WEIGHT DECREASED [None]
